FAERS Safety Report 4544560-9 (Version None)
Quarter: 2005Q1

REPORT INFORMATION
  Report Type: 
  Country: None (occurrence: None)
  Receive Date: 20050105
  Receipt Date: 20030825
  Transmission Date: 20050727
  Serious: Yes (Hospitalization)
  Sender: FDA-Public Use
  Company Number: PHBS2003IT09217

PATIENT
  Age: 60 Year
  Sex: Female

DRUGS (2)
  1. GLEEVEC [Suspect]
     Indication: GASTROINTESTINAL DISORDER
     Dosage: 400 MG/DAY
     Route: 048
     Dates: start: 20030516, end: 20030819
  2. LANSOX [Suspect]
     Indication: NAUSEA
     Dosage: UNK, UNK
     Route: 048
     Dates: start: 20030716, end: 20030801

REACTIONS (7)
  - CONJUNCTIVITIS [None]
  - DRUG INTERACTION [None]
  - ERYTHEMA [None]
  - NAUSEA [None]
  - STEVENS-JOHNSON SYNDROME [None]
  - STOMATITIS [None]
  - TOXIC SKIN ERUPTION [None]
